FAERS Safety Report 7796773-0 (Version None)
Quarter: 2011Q4

REPORT INFORMATION
  Report Type: 
  Country: None (occurrence: None)
  Receive Date: 20111005
  Receipt Date: 20110927
  Transmission Date: 20120403
  Serious: Yes (Death)
  Sender: FDA-Public Use
  Company Number: US-JNJFOC-20111000008

PATIENT
  Age: 1 Decade
  Sex: Male

DRUGS (11)
  1. ETOPOSIDE [Suspect]
     Indication: BONE SARCOMA
     Route: 065
  2. CYTARABINE [Suspect]
     Indication: BONE SARCOMA
     Route: 065
  3. CYTARABINE [Suspect]
     Route: 065
  4. CLOFARABINE [Suspect]
     Indication: BONE SARCOMA
     Route: 065
  5. IFOSFAMIDE [Suspect]
     Indication: BONE SARCOMA
     Route: 065
  6. METHOTREXATE [Suspect]
     Indication: BONE SARCOMA
     Route: 065
  7. LENALIDOMIDE [Suspect]
     Indication: BONE SARCOMA
     Route: 065
  8. DOXORUBICIN HYDROCHLORIDE [Suspect]
     Indication: BONE SARCOMA
     Route: 042
  9. DAUNORUBICIN HCL [Suspect]
     Indication: BONE SARCOMA
     Route: 065
  10. THIOGUANINE [Suspect]
     Indication: BONE SARCOMA
     Route: 065
  11. CISPLATIN [Suspect]
     Indication: BONE SARCOMA
     Route: 065

REACTIONS (2)
  - MYELOID LEUKAEMIA [None]
  - MYELODYSPLASTIC SYNDROME [None]
